FAERS Safety Report 4966697-2 (Version None)
Quarter: 2006Q1

REPORT INFORMATION
  Report Type: 
  Country: None (occurrence: None)
  Receive Date: 20060201
  Receipt Date: 20051212
  Transmission Date: 20060701
  Serious: No
  Sender: FDA-Public Use
  Company Number: 2005PV005734

PATIENT
  Age: 61 Year
  Sex: Female
  Weight: 116.5744 kg

DRUGS (9)
  1. BYETTA [Suspect]
     Indication: DIABETES MELLITUS NON-INSULIN-DEPENDENT
     Dosage: SEE IMAGE
     Dates: start: 20050901, end: 20051001
  2. BYETTA [Suspect]
     Indication: DIABETES MELLITUS NON-INSULIN-DEPENDENT
     Dosage: SEE IMAGE
     Dates: start: 20051210
  3. METAGLIB [Concomitant]
  4. HUMULIN [Concomitant]
  5. AVANDIA [Concomitant]
  6. PRAVACHOL [Concomitant]
  7. HYZAAR [Concomitant]
  8. ACIPHEX [Concomitant]
  9. SYNTHROID [Concomitant]

REACTIONS (7)
  - BACTERIAL INFECTION [None]
  - BLOOD GLUCOSE INCREASED [None]
  - DECREASED APPETITE [None]
  - DRUG INEFFECTIVE [None]
  - NAUSEA [None]
  - VIRAL INFECTION [None]
  - WEIGHT DECREASED [None]
